FAERS Safety Report 5078927-X (Version None)
Quarter: 2006Q3

REPORT INFORMATION
  Report Type: 
  Country: None (occurrence: None)
  Receive Date: 20060808
  Receipt Date: 20060718
  Transmission Date: 20061208
  Serious: Yes (Other)
  Sender: FDA-Public Use
  Company Number: US200605004718

PATIENT
  Age: 77 Year
  Sex: Female

DRUGS (2)
  1. FORTEO [Suspect]
     Indication: OSTEOPOROSIS
     Dosage: 20  UG, DAILY (1/D)
     Dates: start: 20050601
  2. FORTEO [Concomitant]

REACTIONS (3)
  - FEMUR FRACTURE [None]
  - INJURY [None]
  - PHARMACEUTICAL PRODUCT COMPLAINT [None]
